FAERS Safety Report 16900423 (Version 2)
Quarter: 2019Q4

REPORT INFORMATION
  Report Type: Spontaneous
  Country: US (occurrence: US)
  Receive Date: 20191009
  Receipt Date: 20191126
  Transmission Date: 20200122
  Serious: Yes (Hospitalization)
  Sender: FDA-Public Use
  Company Number: US-PFIZER INC-2019433171

PATIENT
  Age: 59 Year
  Sex: Male
  Weight: 73.9 kg

DRUGS (3)
  1. DOXYCYCLINE HYCLATE. [Concomitant]
     Active Substance: DOXYCYCLINE HYCLATE
     Indication: LOCALISED INFECTION
     Dosage: UNK
     Dates: start: 20191008, end: 20191021
  2. ZYVOX [Suspect]
     Active Substance: LINEZOLID
     Indication: LOCALISED INFECTION
     Dosage: 600 MG, 2X/DAY (600MG TABLET-2 TABLETS TAKEN BY MOUTH DAILY: 1 EVERY 12 HOURS)
     Route: 048
     Dates: start: 20190923
  3. ZYVOX [Suspect]
     Active Substance: LINEZOLID
     Indication: STAPHYLOCOCCAL INFECTION
     Dosage: 600 MG, 2X/DAY
     Dates: start: 20190924

REACTIONS (4)
  - Pain [Not Recovered/Not Resolved]
  - Peripheral swelling [Not Recovered/Not Resolved]
  - Insomnia [Not Recovered/Not Resolved]
  - Burning sensation [Not Recovered/Not Resolved]

NARRATIVE: CASE EVENT DATE: 20190924
